FAERS Safety Report 15006307 (Version 1)
Quarter: 2018Q2

REPORT INFORMATION
  Report Type: Spontaneous
  Country: US (occurrence: US)
  Receive Date: 20180526
  Receipt Date: 20180526
  Transmission Date: 20180711
  Serious: Yes (Disabling)
  Sender: FDA-Public Use
  Company Number: None

PATIENT
  Age: 66 Year
  Sex: Female
  Weight: 83.25 kg

DRUGS (5)
  1. DOXYCYCLINE HYCLATE 100 MG TAB [Suspect]
     Active Substance: DOXYCYCLINE HYCLATE
     Indication: ARTHROPOD BITE
     Dosage: ?          QUANTITY:42 TABLET(S);?
     Route: 048
     Dates: start: 20180220, end: 20180225
  2. VITAMIN C [Concomitant]
     Active Substance: ASCORBIC ACID
  3. VALACYCLOVIR [Concomitant]
     Active Substance: VALACYCLOVIR HYDROCHLORIDE
  4. BUPROPION. [Concomitant]
     Active Substance: BUPROPION
  5. PRO-BIOTICS [Concomitant]

REACTIONS (6)
  - Hypersensitivity [None]
  - Exfoliative rash [None]
  - Headache [None]
  - Vision blurred [None]
  - Blindness [None]
  - Swelling face [None]

NARRATIVE: CASE EVENT DATE: 20180225
